FAERS Safety Report 22344395 (Version 2)
Quarter: 2023Q4

REPORT INFORMATION
  Report Type: Spontaneous
  Country: US (occurrence: US)
  Receive Date: 20230519
  Receipt Date: 20231017
  Transmission Date: 20240110
  Serious: No
  Sender: FDA-Public Use
  Company Number: US-SA-SAC20230518000058

PATIENT
  Age: 41 Year
  Sex: Male

DRUGS (1)
  1. DUPIXENT [Suspect]
     Active Substance: DUPILUMAB
     Indication: Dermatitis atopic
     Dosage: 300 MG, QOW
     Route: 058
     Dates: start: 202201

REACTIONS (5)
  - Visual impairment [Unknown]
  - Ocular hyperaemia [Recovered/Resolved]
  - Eye pruritus [Recovered/Resolved]
  - Conjunctivitis [Unknown]
  - Keratitis [Unknown]

NARRATIVE: CASE EVENT DATE: 20230101
